FAERS Safety Report 14765652 (Version 4)
Quarter: 2018Q2

REPORT INFORMATION
  Report Type: Report from Study
  Country: DE (occurrence: DE)
  Receive Date: 20180416
  Receipt Date: 20180516
  Transmission Date: 20180711
  Serious: Yes (Hospitalization, Other)
  Sender: FDA-Public Use
  Company Number: DE-APOPHARMA INC-2018AP009797

PATIENT
  Age: 50 Year
  Sex: Male
  Weight: 100 kg

DRUGS (6)
  1. IBUPROFEN. [Concomitant]
     Active Substance: IBUPROFEN
     Indication: CERVICAL SPINAL STENOSIS
     Dosage: 400 MG, PRN
     Route: 048
     Dates: start: 2009
  2. DEFERIPRONE [Suspect]
     Active Substance: DEFERIPRONE
     Indication: PARKINSON^S DISEASE
     Dosage: 900 MG, BID
     Route: 048
     Dates: start: 20180122, end: 20180402
  3. SYMBICORT [Concomitant]
     Active Substance: BUDESONIDE\FORMOTEROL FUMARATE DIHYDRATE
     Indication: ASTHMA
     Dosage: 320 ?G, BID
     Route: 048
     Dates: start: 2003
  4. MAGNESIUM [Concomitant]
     Active Substance: MAGNESIUM
     Indication: MUSCLE SPASMS
     Dosage: 400 MG, PRN
     Route: 048
     Dates: start: 2013
  5. PRAMIPEXOLE. [Concomitant]
     Active Substance: PRAMIPEXOLE
     Indication: PARKINSON^S DISEASE
     Dosage: 2.1 MG, QD
     Route: 048
     Dates: start: 201707
  6. MAGNESIUM [Concomitant]
     Active Substance: MAGNESIUM
     Indication: PROPHYLAXIS

REACTIONS (1)
  - Atrial fibrillation [Recovered/Resolved]

NARRATIVE: CASE EVENT DATE: 20180402
